FAERS Safety Report 4615861-0 (Version None)
Quarter: 2005Q2

REPORT INFORMATION
  Report Type: 
  Country: None (occurrence: None)
  Receive Date: 20050311
  Receipt Date: 20041104
  Transmission Date: 20051028
  Serious: No
  Sender: FDA-Public Use
  Company Number: 2004-BP-11295BP

PATIENT
  Sex: Female

DRUGS (7)
  1. SPIRIVA [Suspect]
     Indication: CHRONIC OBSTRUCTIVE PULMONARY DISEASE
     Dosage: 18 MCG (18 MCG, 1 CAPSULE OD), IH
     Route: 055
     Dates: start: 20041005
  2. ADVAIR DISKUS 100/50 [Suspect]
  3. PRINIVIL [Concomitant]
  4. SYNTHROID [Concomitant]
  5. ALLEGRA [Concomitant]
  6. ALBUTEROL [Concomitant]
  7. TROZEDINE [Concomitant]

REACTIONS (3)
  - BACK PAIN [None]
  - PAIN [None]
  - PAIN IN EXTREMITY [None]
